FAERS Safety Report 5341418-2 (Version None)
Quarter: 2007Q2

REPORT INFORMATION
  Report Type: 
  Country: None (occurrence: None)
  Receive Date: 20070530
  Receipt Date: 20070518
  Transmission Date: 20071010
  Serious: Yes (Life-Threatening)
  Sender: FDA-Public Use
  Company Number: GXKR2007GB04480

PATIENT
  Age: 22 Year
  Sex: Female
  Weight: 76 kg

DRUGS (5)
  1. METOCLOPRAMIDE [Suspect]
     Indication: NAUSEA
     Dosage: 10 MG, ORAL
     Route: 048
     Dates: start: 20070507, end: 20070508
  2. AMLODIPINE [Concomitant]
  3. ATENOLOL [Concomitant]
  4. CALCIUM PHOSPHATE (CALCIUM PHOSPHATE) [Concomitant]
  5. FUROSEMIDE [Concomitant]

REACTIONS (2)
  - ANAPHYLACTIC REACTION [None]
  - OCULOGYRATION [None]
